FAERS Safety Report 5519121-5 (Version None)
Quarter: 2007Q4

REPORT INFORMATION
  Report Type: 
  Country: None (occurrence: None)
  Receive Date: 20071114
  Receipt Date: 20071029
  Transmission Date: 20080405
  Serious: Yes (Hospitalization, Other)
  Sender: FDA-Public Use
  Company Number: 230033M07DEU

PATIENT
  Age: 31 Year
  Sex: Female

DRUGS (1)
  1. REBIF [Suspect]
     Indication: MULTIPLE SCLEROSIS
     Dosage: 44 MCG, 3 IN 1  WEEKS, SUBCUTANEOUS
     Route: 058
     Dates: start: 19960101, end: 20070901

REACTIONS (6)
  - ARTHRALGIA [None]
  - GINGIVAL BLEEDING [None]
  - LIVEDO RETICULARIS [None]
  - MULTIPLE SCLEROSIS [None]
  - PERIPHERAL COLDNESS [None]
  - SYSTEMIC LUPUS ERYTHEMATOSUS [None]
